FAERS Safety Report 13467853 (Version 3)
Quarter: 2017Q2

REPORT INFORMATION
  Report Type: Spontaneous
  Country: JP (occurrence: JP)
  Receive Date: 20170421
  Receipt Date: 20170621
  Transmission Date: 20170830
  Serious: Yes (Congenital Anomaly, Other)
  Sender: FDA-Public Use
  Company Number: JP-009507513-1704JPN001585J

PATIENT
  Sex: Female
  Weight: 3.12 kg

DRUGS (5)
  1. BELSOMRA [Suspect]
     Active Substance: SUVOREXANT
     Dosage: 15 MG, QD
     Route: 064
     Dates: end: 20161226
  2. LUNESTA [Suspect]
     Active Substance: ESZOPICLONE
     Dosage: 1 MG, TID
     Route: 064
     Dates: end: 20161226
  3. ROZEREM [Suspect]
     Active Substance: RAMELTEON
     Dosage: 8 MG, QD
     Route: 064
     Dates: start: 20161226
  4. LUNESTA [Suspect]
     Active Substance: ESZOPICLONE
     Dosage: 2 DF (TABLET), QD
     Route: 064
     Dates: start: 20170214
  5. LUNESTA [Suspect]
     Active Substance: ESZOPICLONE
     Dosage: 1 DF (TABLET), QD
     Route: 064

REACTIONS (2)
  - Foetal exposure during pregnancy [Recovered/Resolved]
  - Renal aplasia [Recovered/Resolved with Sequelae]
